FAERS Safety Report 11074448 (Version 1)
Quarter: 2015Q2

REPORT INFORMATION
  Report Type: Spontaneous
  Country: FR (occurrence: None)
  Receive Date: 20150427
  Receipt Date: 20150427
  Transmission Date: 20150821
  Serious: Yes (Hospitalization)
  Sender: FDA-Public Use
  Company Number: FK201501848

PATIENT
  Age: 5 Year
  Sex: Male

DRUGS (9)
  1. SEVORANE (SEVOFLURANE) [Suspect]
     Active Substance: SEVOFLURANE
     Indication: ANAESTHESIA
  2. MORPHINE [Concomitant]
     Active Substance: MORPHINE
  3. DEXTROSE 5% (GLUCOSE) SUFENTA (SUFENTANIL CITRATE) [Concomitant]
  4. TRACRIUM (ATRACURIUM BESILATE) [Concomitant]
  5. NAGLAZYME [Suspect]
     Active Substance: GALSULFASE
     Indication: MUCOPOLYSACCHARIDOSIS VI
     Dosage: THERAPY DATES:  AT AGE 4 - ,1 MG/KG, 1 IN 1 WK, UNKNOWN
  6. DIPRIVAN [Suspect]
     Active Substance: PROPOFOL
     Indication: ANAESTHESIA
  7. ZOPHREN (ONDANSETRON) [Concomitant]
     Active Substance: ONDANSETRON
  8. CELOCURINE [Concomitant]
     Active Substance: SUCCINYLCHOLINE CHLORIDE
  9. PERFALGAN [Concomitant]
     Active Substance: ACETAMINOPHEN

REACTIONS (3)
  - Anoxia [None]
  - Glomerulonephritis membranous [None]
  - Airway complication of anaesthesia [None]
